FAERS Safety Report 7632383-3 (Version None)
Quarter: 2011Q3

REPORT INFORMATION
  Report Type: 
  Country: None (occurrence: None)
  Receive Date: 20110725
  Receipt Date: 20110714
  Transmission Date: 20111222
  Serious: Yes (Hospitalization)
  Sender: FDA-Public Use
  Company Number: US-AMGEN-USASP2011035989

PATIENT
  Age: 61 Year
  Sex: Female

DRUGS (4)
  1. ARAVA [Concomitant]
  2. ENBREL [Suspect]
     Indication: RHEUMATOID ARTHRITIS
     Dosage: 50 MG, QWK
     Dates: start: 20040101
  3. ENBREL [Suspect]
     Indication: PSORIATIC ARTHROPATHY
  4. ENBREL [Suspect]
     Indication: PSORIASIS

REACTIONS (5)
  - PSORIASIS [None]
  - JOINT LOCK [None]
  - ARTHRITIS [None]
  - PSORIATIC ARTHROPATHY [None]
  - DRUG INEFFECTIVE [None]
